FAERS Safety Report 5086556-7 (Version None)
Quarter: 2006Q3

REPORT INFORMATION
  Report Type: 
  Country: None (occurrence: None)
  Receive Date: 20060823
  Receipt Date: 20040719
  Transmission Date: 20061208
  Serious: Yes (Other)
  Sender: FDA-Public Use
  Company Number: US-GLAXOSMITHKLINE-A0519849A

PATIENT
  Age: 33 Year
  Sex: Female
  Weight: 114.5 kg

DRUGS (4)
  1. PAXIL [Suspect]
     Indication: ANXIETY
     Route: 048
     Dates: start: 19970501, end: 19990801
  2. ZOLOFT [Suspect]
     Indication: ANXIETY
     Route: 048
     Dates: start: 19990801
  3. KLONOPIN [Concomitant]
  4. INDERAL [Concomitant]

REACTIONS (32)
  - ANGER [None]
  - ANXIETY [None]
  - ASTHENIA [None]
  - BREAST MASS [None]
  - BRUXISM [None]
  - DEPRESSED MOOD [None]
  - DIZZINESS [None]
  - DRUG DEPENDENCE [None]
  - DRUG WITHDRAWAL SYNDROME [None]
  - GASTROOESOPHAGEAL REFLUX DISEASE [None]
  - HEADACHE [None]
  - HYPERACUSIS [None]
  - HYPOTHYROIDISM [None]
  - INCREASED APPETITE [None]
  - INSOMNIA [None]
  - INSULIN RESISTANCE [None]
  - INTERVERTEBRAL DISC PROTRUSION [None]
  - MEMORY IMPAIRMENT [None]
  - MENSTRUAL DISORDER [None]
  - NAUSEA [None]
  - NIGHTMARE [None]
  - OBSESSIVE THOUGHTS [None]
  - OVARIAN CYST [None]
  - PANIC ATTACK [None]
  - PHOTOPHOBIA [None]
  - PHOTOSENSITIVITY REACTION [None]
  - SEXUAL DYSFUNCTION [None]
  - SUICIDAL IDEATION [None]
  - TINNITUS [None]
  - UTERINE LEIOMYOMA [None]
  - VOMITING [None]
  - WEIGHT INCREASED [None]
